FAERS Safety Report 7255330-5 (Version None)
Quarter: 2011Q1

REPORT INFORMATION
  Report Type: 
  Country: None (occurrence: None)
  Receive Date: 20110129
  Receipt Date: 20100301
  Transmission Date: 20110831
  Serious: No
  Sender: FDA-Public Use
  Company Number: US-ABBOTT-10P-163-0629375-00

PATIENT
  Sex: Female
  Weight: 58.566 kg

DRUGS (7)
  1. FROVA [Concomitant]
     Indication: MIGRAINE
     Route: 048
  2. HUMIRA [Suspect]
     Indication: RHEUMATOID ARTHRITIS
     Route: 058
     Dates: start: 20091201
  3. EFFEXOR XR [Concomitant]
     Indication: HEADACHE
     Route: 048
     Dates: start: 20070101
  4. CELEBREX [Concomitant]
     Indication: ARTHRALGIA
     Route: 048
  5. BOTOX [Concomitant]
     Indication: MIGRAINE
     Route: 058
  6. HUMIRA [Suspect]
     Indication: PSORIASIS
  7. ALEVE [Concomitant]
     Indication: ARTHRALGIA
     Route: 048

REACTIONS (2)
  - INJECTION SITE PAIN [None]
  - INCORRECT DOSE ADMINISTERED [None]
